FAERS Safety Report 4956647-7 (Version None)
Quarter: 2006Q1

REPORT INFORMATION
  Report Type: 
  Country: None (occurrence: None)
  Receive Date: 20060323
  Receipt Date: 20060314
  Transmission Date: 20060701
  Serious: Yes (Other)
  Sender: FDA-Public Use
  Company Number: 2006-BP-03068RO

PATIENT
  Age: 43 Year
  Sex: Female

DRUGS (2)
  1. METHOTREXATE [Suspect]
     Indication: RHEUMATOID ARTHRITIS
     Dosage: 12.5 MG WEEKLY
     Dates: start: 20040101
  2. ADALIMUMAB (ADALIMUMAB) [Suspect]
     Indication: RHEUMATOID ARTHRITIS
     Dosage: 40 MG, SC, EVERY OTHER WEEK, SC
     Route: 058
     Dates: start: 20040101

REACTIONS (12)
  - BACTERIAL INFECTION [None]
  - DISEASE PROGRESSION [None]
  - DRUG HYPERSENSITIVITY [None]
  - DRUG INEFFECTIVE [None]
  - DYSPHAGIA [None]
  - GRANULOMA [None]
  - LYMPHADENOPATHY [None]
  - MASS [None]
  - MOUTH ULCERATION [None]
  - ORAL SOFT TISSUE DISORDER [None]
  - RED BLOOD CELL SEDIMENTATION RATE INCREASED [None]
  - TUBERCULOSIS [None]
